FAERS Safety Report 4480572-1 (Version None)
Quarter: 2004Q4

REPORT INFORMATION
  Report Type: 
  Country: None (occurrence: None)
  Receive Date: 20041019
  Receipt Date: 20040520
  Transmission Date: 20050328
  Serious: Yes (Hospitalization, Other)
  Sender: FDA-Public Use
  Company Number: 2004S1003082

PATIENT
  Age: 61 Year
  Sex: Female

DRUGS (5)
  1. APOMORPHINE [Suspect]
     Indication: PARKINSON'S DISEASE
     Dosage: 4-7 MG/HOUR, SUBCUTANEOUS
     Route: 058
     Dates: start: 20010101, end: 20040427
  2. VALSARTAN [Concomitant]
  3. LEVODOPA/BENSERAZIDE [Concomitant]
  4. CABERGOLINE [Concomitant]
  5. HYDROCHLOROTHIAZIDE [Concomitant]

REACTIONS (1)
  - COOMBS POSITIVE HAEMOLYTIC ANAEMIA [None]
